FAERS Safety Report 24105751 (Version 1)
Quarter: 2024Q3

REPORT INFORMATION
  Report Type: Spontaneous
  Country: US (occurrence: US)
  Receive Date: 20240717
  Receipt Date: 20240717
  Transmission Date: 20241016
  Serious: Yes (Hospitalization)
  Sender: SANOFI AVENTIS
  Company Number: US-SANOFI-02128802

PATIENT
  Age: 54 Year
  Sex: Male
  Weight: 174.4 kg

DRUGS (18)
  1. JEVTANA [Suspect]
     Active Substance: CABAZITAXEL
     Indication: Adenocarcinoma
     Dosage: 15 MG/M2 Q3W
     Route: 042
     Dates: start: 20240103, end: 20240103
  2. CARBOPLATIN [Suspect]
     Active Substance: CARBOPLATIN
     Indication: Adenocarcinoma
     Dosage: 3 MG/ML/MIN, Q3W;(TOTAL ADMINISTERED 450 MG);
     Route: 042
     Dates: start: 20240103, end: 20240103
  3. ALBUTEROL [Concomitant]
     Active Substance: ALBUTEROL
     Dosage: UNK
     Route: 065
  4. ROPINIROLE [Concomitant]
     Active Substance: ROPINIROLE
     Dosage: UNK
     Dates: start: 20221005
  5. FENTANYL [Concomitant]
     Active Substance: FENTANYL\FENTANYL CITRATE
     Dosage: UNK
     Dates: start: 20231214
  6. OXYCODONE [Concomitant]
     Active Substance: OXYCODONE
     Dosage: UNK
     Dates: start: 20180131
  7. TYLENOL [Concomitant]
     Active Substance: ACETAMINOPHEN
     Dosage: UNK
     Dates: start: 20190709
  8. OXYBUTYNIN [Concomitant]
     Active Substance: OXYBUTYNIN\OXYBUTYNIN CHLORIDE
     Dosage: UNK
     Dates: start: 20230824
  9. NARCAN [Concomitant]
     Active Substance: NALOXONE HYDROCHLORIDE
     Dosage: UNK
     Dates: start: 20231025
  10. OMEPRAZOLE [Concomitant]
     Active Substance: OMEPRAZOLE
     Dosage: UNK
     Dates: start: 20200506
  11. SENNOSIDES [Concomitant]
     Active Substance: SENNOSIDES
     Dosage: UNK
     Dates: start: 20190709
  12. SILODOSIN [Concomitant]
     Active Substance: SILODOSIN
     Dosage: UNK
     Dates: start: 20190709
  13. MELATONIN [Concomitant]
     Active Substance: MELATONIN
     Dosage: UNK
     Dates: start: 20231102
  14. CALCIUM CARBONATE [Concomitant]
     Active Substance: CALCIUM CARBONATE
     Dosage: UNK
     Dates: start: 20190703
  15. CHOLECALCIFEROL [Concomitant]
     Active Substance: CHOLECALCIFEROL
     Dosage: UNK
     Dates: start: 20190709
  16. NYSTATIN [Concomitant]
     Active Substance: NYSTATIN
     Dosage: UNK
     Dates: start: 20230712
  17. MICONAZOLE [Concomitant]
     Active Substance: MICONAZOLE
     Dosage: UNK
     Dates: start: 20230828
  18. HUMAN RED BLOOD CELL [Concomitant]
     Active Substance: HUMAN RED BLOOD CELL
     Dosage: UNK
     Dates: start: 20240214, end: 20240229

REACTIONS (1)
  - Anaemia [Recovered/Resolved with Sequelae]

NARRATIVE: CASE EVENT DATE: 20240306
